FAERS Safety Report 5965018-6 (Version None)
Quarter: 2008Q4

REPORT INFORMATION
  Report Type: 
  Country: None (occurrence: None)
  Receive Date: 20081125
  Receipt Date: 20081117
  Transmission Date: 20090506
  Serious: Yes (Hospitalization, Other)
  Sender: FDA-Public Use
  Company Number: GB-NOVOPROD-250066

PATIENT
  Sex: Female
  Weight: 91.3 kg

DRUGS (13)
  1. INSULIN DETEMIR FLEXPEN [Suspect]
     Indication: INSULIN-REQUIRING TYPE 2 DIABETES MELLITUS
     Dosage: 2 U, QD
     Route: 058
     Dates: start: 20050922, end: 20051214
  2. INSULIN DETEMIR FLEXPEN [Suspect]
     Dosage: 2 IU, QD
     Route: 058
     Dates: start: 20051216
  3. DICLOFENAC SODIUM [Concomitant]
     Dosage: 100 MG, QD
     Route: 048
     Dates: start: 20050101
  4. ADALAT [Concomitant]
     Dosage: 40 MG, QD
     Route: 048
     Dates: start: 19970101
  5. GLICLAZIDE [Concomitant]
     Dosage: 320 MG, QD
     Route: 048
     Dates: start: 19980101
  6. TEMAZEPAM [Concomitant]
     Dosage: 20 MG, QD
     Route: 048
     Dates: start: 19960101
  7. FLUOXETINE [Concomitant]
     Dosage: 20 MG, QD
     Route: 048
     Dates: start: 20050909
  8. ATENOLOL [Concomitant]
     Dosage: 50 MG, QD
     Route: 048
     Dates: start: 19970101
  9. SIMVASTATIN [Concomitant]
     Dosage: 20 MG, QD
     Route: 048
     Dates: start: 20050914
  10. METFORMIN HCL [Concomitant]
     Dosage: 3 G, QD
     Route: 048
     Dates: start: 19940101
  11. ISOSORBIDE MONONITRATE [Concomitant]
     Dosage: 80 MG, QD
     Route: 048
     Dates: start: 19940101
  12. AMITRIPTYLINE HCL [Concomitant]
     Dosage: 10 MG, QD
     Route: 048
     Dates: start: 20030101
  13. ASPIRIN [Concomitant]
     Dosage: 75 MG, QD
     Route: 048
     Dates: start: 19930101

REACTIONS (3)
  - CONFUSIONAL STATE [None]
  - DEHYDRATION [None]
  - HYPOGLYCAEMIC UNCONSCIOUSNESS [None]
